FAERS Safety Report 19796983 (Version 1)
Quarter: 2021Q3

REPORT INFORMATION
  Report Type: Spontaneous
  Country: US (occurrence: US)
  Receive Date: 20210905
  Receipt Date: 20210905
  Transmission Date: 20211014
  Serious: Yes (Disabling)
  Sender: FDA-Public Use
  Company Number: None

PATIENT
  Age: 61 Year
  Sex: Female
  Weight: 65.25 kg

DRUGS (15)
  1. CLONAZEPAM. [Suspect]
     Active Substance: CLONAZEPAM
     Indication: INSOMNIA
     Dosage: QUANTITY:1 TABLET(S);?
     Route: 048
     Dates: start: 20030715, end: 20201115
  2. WELLBUTRIN [Concomitant]
     Active Substance: BUPROPION HYDROCHLORIDE
  3. GAS?X [Concomitant]
     Active Substance: DIMETHICONE
  4. MAGNESIUM [Concomitant]
     Active Substance: MAGNESIUM
  5. ZOLOFT [Concomitant]
     Active Substance: SERTRALINE HYDROCHLORIDE
  6. CALCIUM [Concomitant]
     Active Substance: CALCIUM
  7. CETEREZINE HYDROCHLORIDE [Concomitant]
  8. FLUITICOSONE PROPIONATE [Concomitant]
  9. MULTIVITAMIN [Concomitant]
     Active Substance: VITAMINS
  10. GAPAPENTIN [Concomitant]
  11. COLACE [Concomitant]
     Active Substance: DOCUSATE SODIUM
  12. DEPAKOTE [Concomitant]
     Active Substance: DIVALPROEX SODIUM
  13. PROPRANOLOL [Concomitant]
     Active Substance: PROPRANOLOL HYDROCHLORIDE
  14. PRAVASTATIN. [Concomitant]
     Active Substance: PRAVASTATIN
  15. CALCIUM [Concomitant]
     Active Substance: CALCIUM

REACTIONS (7)
  - Abdominal pain [None]
  - Diarrhoea [None]
  - Drug dependence [None]
  - Insomnia [None]
  - Constipation [None]
  - Drug withdrawal syndrome [None]
  - Flatulence [None]

NARRATIVE: CASE EVENT DATE: 20200315
